FAERS Safety Report 5211806-3 (Version None)
Quarter: 2007Q1

REPORT INFORMATION
  Report Type: 
  Country: None (occurrence: None)
  Receive Date: 20070118
  Receipt Date: 20070109
  Transmission Date: 20070707
  Serious: Yes (Hospitalization)
  Sender: FDA-Public Use
  Company Number: JP-ROCHE-478187

PATIENT
  Age: 59 Year
  Sex: Male

DRUGS (8)
  1. PEG-INTERFERON A-2A (RO 25-8310) [Suspect]
     Route: 058
     Dates: start: 20040623, end: 20040720
  2. PEG-INTERFERON A-2A (RO 25-8310) [Suspect]
     Route: 058
     Dates: start: 20041006, end: 20041027
  3. PEG-INTERFERON A-2A (RO 25-8310) [Suspect]
     Route: 058
     Dates: start: 20041119, end: 20041126
  4. PEG-INTERFERON A-2A (RO 25-8310) [Suspect]
     Route: 058
     Dates: start: 20041220, end: 20050209
  5. PEG-INTERFERON A-2A (RO 25-8310) [Suspect]
     Route: 058
     Dates: start: 20050423, end: 20050525
  6. PEG-INTERFERON A-2A (RO 25-8310) [Suspect]
     Route: 058
     Dates: start: 20050607, end: 20050922
  7. TACROLIMUS HYDRATE [Concomitant]
     Dosage: DOSAGE FORM: ORAL FORMULATION (NOS).
     Route: 048
     Dates: start: 20010115
  8. INSULIN [Concomitant]
     Indication: DIABETES MELLITUS
     Route: 058
     Dates: start: 20010315

REACTIONS (1)
  - PLEURAL EFFUSION [None]
